FAERS Safety Report 23219172 (Version 1)
Quarter: 2023Q4

REPORT INFORMATION
  Report Type: Spontaneous
  Country: US (occurrence: None)
  Receive Date: 20231121
  Receipt Date: 20231121
  Transmission Date: 20240110
  Serious: Yes (Hospitalization)
  Sender: FDA-Public Use
  Company Number: None

PATIENT
  Age: 63 Year
  Sex: Male

DRUGS (1)
  1. WARFARIN SODIUM [Suspect]
     Active Substance: WARFARIN SODIUM
     Dates: end: 20231023

REACTIONS (5)
  - Cerebral infarction [None]
  - Embolic stroke [None]
  - Cerebral microhaemorrhage [None]
  - Atrial fibrillation [None]
  - Encephalopathy [None]

NARRATIVE: CASE EVENT DATE: 20231026
